FAERS Safety Report 9106104 (Version 1)
Quarter: 2013Q1

REPORT INFORMATION
  Report Type: Report from Study
  Country: US (occurrence: US)
  Receive Date: 20130220
  Receipt Date: 20130220
  Transmission Date: 20140127
  Serious: Yes (Hospitalization)
  Sender: FDA-Public Use
  Company Number: US-ROCHE-773061

PATIENT
  Age: 61 Year
  Sex: Female
  Weight: 55.5 kg

DRUGS (6)
  1. BEVACIZUMAB [Suspect]
     Indication: MALIGNANT PERITONEAL NEOPLASM
     Dosage: LAST DOSE PRIOR TO SAE: 25 FEBRUARY 2011(CYCLE 2,DAY 1),OVER 30-90 MIN ON DAYS 1 AND 15, DOSE HELD
     Route: 042
  2. BEVACIZUMAB [Suspect]
     Dosage: LAST DOSE PRIOR TO SAE: 10 JUNE 2011(CYCLE 5),OVER 30-90 MIN ON DAYS 1 AND 15.
     Route: 042
  3. TEMSIROLIMUS [Suspect]
     Indication: MALIGNANT PERITONEAL NEOPLASM
     Dosage: LAST DOSE PRIOR TO SAE: 10 JUNE 2011 (CYCLE 5), ON DAYS 1, 8, 15 AND 22
     Route: 042
  4. LEVOTHYROXINE [Concomitant]
     Route: 065
  5. DILAUDID [Concomitant]
     Route: 065
  6. DURAGESIC [Concomitant]
     Route: 065

REACTIONS (4)
  - Anal fissure [Recovering/Resolving]
  - Abdominal pain [Unknown]
  - Nausea [Unknown]
  - Vomiting [Unknown]
